FAERS Safety Report 5409746-X (Version None)
Quarter: 2007Q3

REPORT INFORMATION
  Report Type: 
  Country: None (occurrence: None)
  Receive Date: 20070809
  Receipt Date: 20070803
  Transmission Date: 20080115
  Serious: Yes (Hospitalization)
  Sender: FDA-Public Use
  Company Number: B0481996A

PATIENT
  Age: 27 Year
  Sex: Male

DRUGS (7)
  1. PAXIL [Suspect]
     Indication: MAJOR DEPRESSION
     Dosage: 40MG TWICE PER DAY
     Route: 048
     Dates: start: 20070726, end: 20070731
  2. PAXIL [Suspect]
     Dosage: 20MG PER DAY
     Route: 048
     Dates: start: 20070801
  3. HALCION [Suspect]
     Route: 048
  4. SILECE [Suspect]
     Route: 065
  5. AMOBAN [Suspect]
     Route: 048
  6. ALPRAZOLAM [Suspect]
     Route: 048
  7. DOGMATYL [Concomitant]
     Route: 048

REACTIONS (1)
  - DISINHIBITION [None]
